FAERS Safety Report 13850170 (Version 2)
Quarter: 2017Q3

REPORT INFORMATION
  Report Type: Report from Study
  Country: CA (occurrence: CA)
  Receive Date: 20170809
  Receipt Date: 20170823
  Transmission Date: 20171127
  Serious: Yes (Hospitalization)
  Sender: FDA-Public Use
  Company Number: CA-PFIZER INC-2017074565

PATIENT
  Age: 46 Year
  Sex: Male
  Weight: 77 kg

DRUGS (10)
  1. PLAVIX [Concomitant]
     Active Substance: CLOPIDOGREL BISULFATE
     Dosage: UNK, QD
     Dates: start: 2013
  2. IMURAN [Concomitant]
     Active Substance: AZATHIOPRINE
     Dosage: 50 MG, UNK
     Dates: start: 20131231
  3. ENTYVIO [Suspect]
     Active Substance: VEDOLIZUMAB
     Indication: COLITIS ULCERATIVE
     Dosage: 300 MG, UNK
     Route: 042
     Dates: start: 20160705
  4. DIAMICRON [Concomitant]
     Active Substance: GLICLAZIDE
     Dosage: 30 MG, QD
     Route: 048
  5. LIPITOR [Concomitant]
     Active Substance: ATORVASTATIN CALCIUM
     Dosage: 40 MG, QD
     Route: 048
     Dates: start: 2013
  6. PANTOLOC [Suspect]
     Active Substance: PANTOPRAZOLE SODIUM
     Dosage: 20 MG, QD
     Route: 048
     Dates: start: 2013
  7. METFORMIN [Concomitant]
     Active Substance: METFORMIN HYDROCHLORIDE
     Dosage: 500 MG, BID
     Route: 048
  8. SIMPONI [Concomitant]
     Active Substance: GOLIMUMAB
     Dosage: UNK
     Dates: start: 20160201
  9. METOPROLOL. [Concomitant]
     Active Substance: METOPROLOL
     Dosage: UNK, BID
     Dates: start: 2013
  10. TELMISARTAN. [Concomitant]
     Active Substance: TELMISARTAN
     Dosage: 20 MG, QD
     Dates: start: 201601

REACTIONS (1)
  - Viral infection [Recovered/Resolved]

NARRATIVE: CASE EVENT DATE: 20170603
